FAERS Safety Report 24676352 (Version 1)
Quarter: 2024Q4

REPORT INFORMATION
  Report Type: Spontaneous
  Country: US (occurrence: US)
  Receive Date: 20241128
  Receipt Date: 20241128
  Transmission Date: 20250115
  Serious: No
  Sender: SANOFI AVENTIS
  Company Number: US-SA-2024SA345799

PATIENT
  Age: 67 Year
  Sex: Male

DRUGS (20)
  1. DUPIXENT [Suspect]
     Active Substance: DUPILUMAB
     Indication: Asthma
     Dosage: 300 MG, QOW
     Route: 058
  2. AMLODIPINE [Concomitant]
     Active Substance: AMLODIPINE BESYLATE
  3. HYDROCODONE [Concomitant]
     Active Substance: HYDROCODONE
  4. MINOXIDIL [Concomitant]
     Active Substance: MINOXIDIL
  5. MORPHINE SULFATE [Concomitant]
     Active Substance: MORPHINE SULFATE
  6. PAROXETINE [Concomitant]
     Active Substance: PAROXETINE
  7. PRAVASTATIN [Concomitant]
     Active Substance: PRAVASTATIN
  8. LANTUS [Concomitant]
     Active Substance: INSULIN GLARGINE
  9. JARDIANCE [Concomitant]
     Active Substance: EMPAGLIFLOZIN
  10. VALSARTAN [Concomitant]
     Active Substance: VALSARTAN
     Dosage: UNK
  11. CARVEDILOL [Concomitant]
     Active Substance: CARVEDILOL
  12. FAMOTIDINE [Concomitant]
     Active Substance: FAMOTIDINE
  13. FLUOXETINE [Concomitant]
     Active Substance: FLUOXETINE HYDROCHLORIDE
  14. GABAPENTIN [Concomitant]
     Active Substance: GABAPENTIN
  15. PREDNISONE [Concomitant]
     Active Substance: PREDNISONE
  16. VITAMIN D [Concomitant]
     Active Substance: VITAMIN D NOS
  17. ATROVENT HFA [Concomitant]
     Active Substance: IPRATROPIUM BROMIDE
  18. CLONIDINE [Concomitant]
     Active Substance: CLONIDINE
  19. NALOXONE HCL [Concomitant]
     Active Substance: NALOXONE HYDROCHLORIDE
  20. PROZAC [Concomitant]
     Active Substance: FLUOXETINE HYDROCHLORIDE

REACTIONS (4)
  - Respiratory disorder [Unknown]
  - Asthma [Unknown]
  - Wheezing [Unknown]
  - Arthralgia [Unknown]

NARRATIVE: CASE EVENT DATE: 20241101
